FAERS Safety Report 8407971-7 (Version None)
Quarter: 2012Q2

REPORT INFORMATION
  Report Type: 
  Country: None (occurrence: None)
  Receive Date: 20120601
  Receipt Date: 20120601
  Transmission Date: 20120825
  Serious: Yes (Other)
  Sender: FDA-Public Use
  Company Number: None

PATIENT
  Sex: Male
  Weight: 74.1631 kg

DRUGS (7)
  1. LENALIDOMIDE [Suspect]
     Indication: MANTLE CELL LYMPHOMA
     Dosage: 10MG IV
     Route: 042
     Dates: start: 20110128, end: 20110531
  2. LYRICA [Concomitant]
  3. LORTAB [Concomitant]
  4. DILAUDID [Concomitant]
  5. PERCOCET [Concomitant]
  6. BORTEZOMIB [Suspect]
     Indication: MANTLE CELL LYMPHOMA
     Dosage: 2MG IV
     Route: 042
     Dates: start: 20110128, end: 20110527
  7. RITUXIMAB [Suspect]
     Indication: MANTLE CELL LYMPHOMA
     Dosage: 780MG IV
     Route: 042
     Dates: start: 20110128, end: 20110524

REACTIONS (3)
  - ANAL CANCER [None]
  - TREATMENT RELATED SECONDARY MALIGNANCY [None]
  - SQUAMOUS CELL CARCINOMA [None]
